FAERS Safety Report 7921888 (Version 6)
Quarter: 2013Q1

REPORT INFORMATION
  Report Type: Spontaneous
  Country: US (occurrence: US)
  Receive Date: 20110429
  Receipt Date: 20130125
  Transmission Date: 20140127
  Serious: Yes (Hospitalization, Other)
  Sender: FDA-Public Use
  Company Number: US-ASTRAZENECA-2010SE24138

PATIENT
  Age: 48 Year
  Sex: Male

DRUGS (10)
  1. NEXIUM [Suspect]
     Route: 048
  2. SEROQUEL [Suspect]
     Indication: SCHIZOPHRENIA, PARANOID TYPE
     Dosage: UP TO 7 TABLETS DAILY
     Route: 048
  3. SEROQUEL [Suspect]
     Indication: BRAIN INJURY
     Dosage: UP TO 7 TABLETS DAILY
     Route: 048
  4. SEROQUEL [Suspect]
     Indication: SCHIZOPHRENIA
     Dosage: UP TO 7 TABLETS DAILY
     Route: 048
  5. SEROQUEL [Suspect]
     Indication: SCHIZOPHRENIA, PARANOID TYPE
     Route: 048
  6. SEROQUEL [Suspect]
     Indication: BRAIN INJURY
     Route: 048
  7. SEROQUEL [Suspect]
     Indication: SCHIZOPHRENIA
     Route: 048
  8. SEROQUEL [Suspect]
     Indication: SCHIZOPHRENIA, PARANOID TYPE
     Route: 048
  9. SEROQUEL [Suspect]
     Indication: BRAIN INJURY
     Route: 048
  10. SEROQUEL [Suspect]
     Indication: SCHIZOPHRENIA
     Route: 048

REACTIONS (12)
  - Accident at work [Unknown]
  - Schizophrenia, paranoid type [Unknown]
  - Aphagia [Unknown]
  - Brain injury [Unknown]
  - Irritability [Unknown]
  - Abdominal pain upper [Unknown]
  - Malaise [Unknown]
  - Panic disorder [Unknown]
  - Schizophrenia [Unknown]
  - Vomiting [Unknown]
  - Intentional drug misuse [Unknown]
  - Drug dose omission [Unknown]
